FAERS Safety Report 7931433-4 (Version None)
Quarter: 2011Q4

REPORT INFORMATION
  Report Type: 
  Country: None (occurrence: None)
  Receive Date: 20111121
  Receipt Date: 20111108
  Transmission Date: 20120403
  Serious: Yes (Hospitalization)
  Sender: FDA-Public Use
  Company Number: ES-BAYER-2011-104924

PATIENT
  Age: 86 Year
  Sex: Male

DRUGS (4)
  1. ASPIRIN [Suspect]
     Indication: MYOCARDIAL ISCHAEMIA
     Dosage: 100 MG, HS
     Route: 048
     Dates: start: 20110301, end: 20110804
  2. ENOXAPARIN [Interacting]
     Indication: PROPHYLAXIS
     Dosage: 40 MG, HS
     Route: 058
     Dates: start: 20110726, end: 20110804
  3. ACETAMINOPHEN [Concomitant]
     Indication: PAIN
     Dosage: 1 G, Q4HR
     Route: 042
     Dates: start: 20110725, end: 20110806
  4. ASPIRIN [Interacting]
     Dosage: 450 MG, HS
     Route: 042
     Dates: start: 20110728, end: 20110804

REACTIONS (1)
  - ANASTOMOTIC ULCER HAEMORRHAGE [None]
